FAERS Safety Report 8260460-5 (Version None)
Quarter: 2012Q2

REPORT INFORMATION
  Report Type: 
  Country: None (occurrence: None)
  Receive Date: 20120404
  Receipt Date: 20120402
  Transmission Date: 20120825
  Serious: Yes (Other)
  Sender: FDA-Public Use
  Company Number: US-MERCK-1204USA00055

PATIENT
  Age: 84 Year
  Sex: Female
  Weight: 69 kg

DRUGS (4)
  1. JANUVIA [Suspect]
     Indication: TYPE 2 DIABETES MELLITUS
     Route: 048
  2. LANTUS [Suspect]
     Indication: TYPE 2 DIABETES MELLITUS
     Route: 058
  3. HUMULIN R [Suspect]
     Indication: TYPE 2 DIABETES MELLITUS
     Route: 058
  4. HUMULIN N [Suspect]
     Indication: TYPE 2 DIABETES MELLITUS
     Route: 058

REACTIONS (5)
  - WEIGHT DECREASED [None]
  - MEDICAL DEVICE COMPLICATION [None]
  - LOSS OF CONSCIOUSNESS [None]
  - CARDIAC PACEMAKER INSERTION [None]
  - BLOOD GLUCOSE DECREASED [None]
